FAERS Safety Report 12342885 (Version 6)
Quarter: 2016Q3

REPORT INFORMATION
  Report Type: Report from Study
  Country: JP (occurrence: JP)
  Receive Date: 20160506
  Receipt Date: 20160812
  Transmission Date: 20161109
  Serious: Yes (Hospitalization)
  Sender: FDA-Public Use
  Company Number: JP-ABBVIE-16P-087-1614636-00

PATIENT
  Sex: Female
  Weight: 44.2 kg

DRUGS (16)
  1. PYDOXAL [Concomitant]
     Active Substance: PYRIDOXAL
     Indication: VITAMIN B6 DEFICIENCY
     Route: 048
     Dates: start: 20150327
  2. QUETIAPINE. [Concomitant]
     Active Substance: QUETIAPINE
     Route: 048
     Dates: start: 20150629, end: 20160505
  3. SINEMET [Suspect]
     Active Substance: CARBIDOPA\LEVODOPA
     Indication: PARKINSON^S DISEASE
     Route: 048
     Dates: start: 20150308
  4. HYALONSAN [Concomitant]
     Indication: DRY EYE
     Dosage: FORM STRENGTH: 0.1% OPHTHALMIC SOLUTION, DOSE: OPTIMUM DOSE
     Dates: start: 201106
  5. LAMISIL [Concomitant]
     Active Substance: TERBINAFINE HYDROCHLORIDE
     Indication: TINEA PEDIS
     Dosage: OPTIMUM DOSE
     Route: 062
     Dates: start: 201405
  6. RIVOTRIL [Concomitant]
     Active Substance: CLONAZEPAM
     Indication: NIGHTMARE
     Route: 048
     Dates: start: 20140918, end: 20160104
  7. RIVOTRIL [Concomitant]
     Active Substance: CLONAZEPAM
     Route: 048
     Dates: start: 20160105, end: 20160122
  8. NOURIAST [Concomitant]
     Active Substance: ISTRADEFYLLINE
     Dosage: 1X DURING 16 HOURS OF PLANNED DUODOPA USE
     Route: 048
     Dates: start: 20160202
  9. QUETIAPINE. [Concomitant]
     Active Substance: QUETIAPINE
     Indication: DELUSION
     Route: 048
     Dates: start: 20150624, end: 20150628
  10. NOURIAST [Concomitant]
     Active Substance: ISTRADEFYLLINE
     Indication: PARKINSON^S DISEASE
     Dosage: 1X DURING 16 HOURS OF PLANNED DUODOPA USE
     Route: 048
     Dates: start: 20160106, end: 20160114
  11. LEVODOPA [Concomitant]
     Active Substance: LEVODOPA
     Indication: PARKINSON^S DISEASE
     Route: 048
     Dates: start: 20150308
  12. WHITE PETROLATUM [Concomitant]
     Active Substance: PETROLATUM
     Indication: STOMA SITE ERYTHEMA
     Dosage: OPTIMUM DOSE
     Route: 062
     Dates: start: 20150918
  13. SENNOSIDE [Concomitant]
     Active Substance: SENNOSIDES
     Indication: CONSTIPATION
     Dosage: PRN
     Route: 048
     Dates: start: 20160616
  14. DUODOPA [Suspect]
     Active Substance: CARBIDOPA\LEVODOPA
     Indication: PARKINSON^S DISEASE
     Dosage: DAILY
     Route: 050
     Dates: start: 20141210
  15. RIVOTRIL [Concomitant]
     Active Substance: CLONAZEPAM
     Route: 048
     Dates: start: 20160123, end: 20160629
  16. MAGNESIUM OXIDE. [Concomitant]
     Active Substance: MAGNESIUM OXIDE
     Indication: CONSTIPATION
     Dates: start: 20160301

REACTIONS (1)
  - Parkinson^s disease psychosis [Unknown]

NARRATIVE: CASE EVENT DATE: 20160323
